FAERS Safety Report 7993610-6 (Version None)
Quarter: 2011Q4

REPORT INFORMATION
  Report Type: 
  Country: None (occurrence: None)
  Receive Date: 20111219
  Receipt Date: 20111209
  Transmission Date: 20120403
  Serious: Yes (Other)
  Sender: FDA-Public Use
  Company Number: US-ASTRAZENECA-2011SE67629

PATIENT
  Age: 64 Year
  Sex: Female
  Weight: 93 kg

DRUGS (11)
  1. VITAMIN D [Concomitant]
  2. AMITRIPTYLINE HCL [Concomitant]
  3. LEVOTHYROXINE SODIUM [Concomitant]
  4. XANAX [Concomitant]
  5. SOMA [Concomitant]
  6. WARFARIN SODIUM [Concomitant]
  7. MIRAPEX [Concomitant]
  8. EFFEXOR [Concomitant]
  9. CRESTOR [Suspect]
     Route: 048
  10. NEXIUM [Suspect]
     Route: 048
  11. LISINOPRIL [Concomitant]

REACTIONS (13)
  - HEARING IMPAIRED [None]
  - DIZZINESS [None]
  - FALL [None]
  - TINNITUS [None]
  - MENIERE'S DISEASE [None]
  - NAUSEA [None]
  - SINUSITIS [None]
  - BRONCHITIS [None]
  - WEIGHT DECREASED [None]
  - ARTHROPATHY [None]
  - SPINAL FRACTURE [None]
  - ENDOLYMPHATIC HYDROPS [None]
  - HAEMATEMESIS [None]
